FAERS Safety Report 9776215 (Version 2)
Quarter: 2014Q1

REPORT INFORMATION
  Report Type: Report from Study
  Country: JP (occurrence: JP)
  Receive Date: 20131220
  Receipt Date: 20140103
  Transmission Date: 20141002
  Serious: Yes (Other)
  Sender: FDA-Public Use
  Company Number: JP-TAKEDA-2013TJP003961

PATIENT
  Age: 79 Year
  Sex: Male
  Weight: 55 kg

DRUGS (6)
  1. ALOGLIPTIN [Suspect]
     Indication: TYPE 2 DIABETES MELLITUS
     Dosage: 25 MG, QD
     Route: 048
     Dates: start: 20111209
  2. BASEN [Concomitant]
     Indication: TYPE 2 DIABETES MELLITUS
     Dosage: 0.9 MG, 1 DAYS
     Route: 048
  3. MEVALOTIN [Concomitant]
     Dosage: UNK
     Route: 048
  4. AMLODIN [Concomitant]
     Dosage: UNK
     Route: 048
  5. BUFFERIN                           /00009201/ [Concomitant]
     Dosage: UNK
     Route: 048
  6. TANATRIL [Concomitant]
     Dosage: UNK
     Route: 048

REACTIONS (1)
  - Prostate cancer [Recovering/Resolving]
